FAERS Safety Report 6561623-7 (Version None)
Quarter: 2010Q1

REPORT INFORMATION
  Report Type: 
  Country: None (occurrence: None)
  Receive Date: 20100130
  Receipt Date: 20091022
  Transmission Date: 20100710
  Serious: No
  Sender: FDA-Public Use
  Company Number: US-ABBOTT-09P-163-0605019-00

PATIENT
  Sex: Male
  Weight: 87.622 kg

DRUGS (2)
  1. HUMIRA [Suspect]
     Indication: PSORIASIS
     Route: 058
  2. HUMIRA [Suspect]
     Indication: PSORIATIC ARTHROPATHY

REACTIONS (6)
  - ARTHRALGIA [None]
  - ARTHRITIS [None]
  - FALL [None]
  - JOINT INJURY [None]
  - OROPHARYNGEAL PAIN [None]
  - WEIGHT INCREASED [None]
